FAERS Safety Report 12952051 (Version 2)
Quarter: 2016Q4

REPORT INFORMATION
  Report Type: Spontaneous
  Country: JP (occurrence: JP)
  Receive Date: 20161117
  Receipt Date: 20161128
  Transmission Date: 20170207
  Serious: Yes (Death, Other)
  Sender: FDA-Public Use
  Company Number: JP-GILEAD-2016-0241165

PATIENT
  Age: 49 Year
  Sex: Male

DRUGS (4)
  1. EPINASTINE [Concomitant]
     Active Substance: EPINASTINE
     Dosage: UNK
     Dates: start: 20160817
  2. URIEF [Concomitant]
     Active Substance: SILODOSIN
     Indication: DYSURIA
     Dosage: UNK
     Dates: start: 20160817
  3. HARVONI [Suspect]
     Active Substance: LEDIPASVIR\SOFOSBUVIR
     Indication: CHRONIC HEPATITIS C
     Dosage: 1 DF, UNK
     Route: 048
     Dates: start: 20160914
  4. LEVOFLOXACIN. [Concomitant]
     Active Substance: LEVOFLOXACIN
     Dosage: UNK
     Dates: start: 20160817

REACTIONS (7)
  - Cardio-respiratory arrest [Fatal]
  - Malaise [Unknown]
  - Cardiac failure acute [Fatal]
  - Pain in extremity [Unknown]
  - Musculoskeletal pain [Unknown]
  - Mitral valve incompetence [Unknown]
  - Palpitations [Unknown]

NARRATIVE: CASE EVENT DATE: 201609
